FAERS Safety Report 19936732 (Version 1)
Quarter: 2021Q4

REPORT INFORMATION
  Report Type: Report from Study
  Country: None (occurrence: DO)
  Receive Date: 20211008
  Receipt Date: 20211008
  Transmission Date: 20220303
  Serious: Yes (Other)
  Sender: FDA-Public Use
  Company Number: DO-ABBVIE-21K-279-4112270-00

PATIENT
  Sex: Female
  Weight: 73 kg

DRUGS (1)
  1. HUMIRA [Suspect]
     Active Substance: ADALIMUMAB
     Indication: Psoriatic arthropathy
     Route: 058
     Dates: start: 20120830, end: 20210920

REACTIONS (10)
  - Memory impairment [Recovering/Resolving]
  - Depression [Recovering/Resolving]
  - Gait disturbance [Recovering/Resolving]
  - Asthenia [Recovering/Resolving]
  - Arthropathy [Recovering/Resolving]
  - Muscular weakness [Recovering/Resolving]
  - Unevaluable event [Recovering/Resolving]
  - Tremor [Recovering/Resolving]
  - Pain [Recovering/Resolving]
  - Rhinitis [Recovering/Resolving]

NARRATIVE: CASE EVENT DATE: 20200101
